FAERS Safety Report 5126107-1 (Version None)
Quarter: 2006Q4

REPORT INFORMATION
  Report Type: 
  Country: None (occurrence: None)
  Receive Date: 20061012
  Receipt Date: 20060721
  Transmission Date: 20070319
  Serious: Yes (Death, Life-Threatening, Hospitalization)
  Sender: FDA-Public Use
  Company Number: ES-BRISTOL-MYERS SQUIBB COMPANY-13449699

PATIENT
  Age: 67 Year
  Sex: Female

DRUGS (5)
  1. CISPLATIN [Suspect]
     Indication: GASTRIC CANCER
     Route: 041
     Dates: start: 20060628, end: 20060628
  2. FLUOROURACIL [Suspect]
     Indication: GASTRIC CANCER
     Route: 041
     Dates: start: 20060628, end: 20060703
  3. EPREX [Concomitant]
     Indication: ANAEMIA
     Route: 058
     Dates: start: 20060623
  4. FERROUS SULFATE TAB [Concomitant]
     Indication: ANAEMIA
     Route: 048
     Dates: start: 20060623
  5. OMEPRAZOLE [Concomitant]
     Indication: PROPHYLAXIS
     Route: 048

REACTIONS (4)
  - FEBRILE NEUTROPENIA [None]
  - MUCOSAL INFLAMMATION [None]
  - SEPSIS [None]
  - THROMBOCYTOPENIA [None]
